FAERS Safety Report 7362269-3 (Version None)
Quarter: 2011Q1

REPORT INFORMATION
  Report Type: 
  Country: None (occurrence: None)
  Receive Date: 20110318
  Receipt Date: 20110307
  Transmission Date: 20110831
  Serious: Yes (Other)
  Sender: FDA-Public Use
  Company Number: PHHY2011US00796

PATIENT
  Sex: Female
  Weight: 55 kg

DRUGS (2)
  1. EXJADE [Suspect]
     Indication: THALASSAEMIA
     Dosage: 625 MG, DAILY
     Route: 048
     Dates: start: 20100615
  2. EXJADE [Suspect]
     Indication: HAEMOCHROMATOSIS

REACTIONS (13)
  - SWELLING [None]
  - RETCHING [None]
  - NAUSEA [None]
  - INSOMNIA [None]
  - SCRATCH [None]
  - DEPRESSION [None]
  - DIARRHOEA [None]
  - ABDOMINAL DISTENSION [None]
  - PAIN [None]
  - FOOD POISONING [None]
  - DIZZINESS [None]
  - REGURGITATION [None]
  - DECREASED APPETITE [None]
